FAERS Safety Report 19959582 (Version 2)
Quarter: 2025Q3

REPORT INFORMATION
  Report Type: Spontaneous
  Country: EU (occurrence: EU)
  Receive Date: 20211015
  Receipt Date: 20250714
  Transmission Date: 20251021
  Serious: Yes (Death, Other)
  Sender: MYLAN
  Company Number: EU-PFIZER INC-2021711029

PATIENT
  Age: 58 Year
  Sex: Male

DRUGS (8)
  1. VORICONAZOLE [Suspect]
     Active Substance: VORICONAZOLE
     Indication: Aspergillus infection
     Dosage: 250 MILLIGRAM, QD
  2. VORICONAZOLE [Suspect]
     Active Substance: VORICONAZOLE
     Indication: Endocarditis
     Dosage: 250 MILLIGRAM, QD
     Route: 065
  3. VORICONAZOLE [Suspect]
     Active Substance: VORICONAZOLE
     Dosage: 250 MILLIGRAM, QD
     Route: 065
  4. VORICONAZOLE [Suspect]
     Active Substance: VORICONAZOLE
     Dosage: 250 MILLIGRAM, QD
  5. CASPOFUNGIN [Suspect]
     Active Substance: CASPOFUNGIN
     Indication: Endocarditis
     Dosage: 120 MILLIGRAM, QD (70+50 MG/DAY)
  6. CASPOFUNGIN [Suspect]
     Active Substance: CASPOFUNGIN
     Indication: Aspergillus infection
     Dosage: 120 MILLIGRAM, QD (70+50 MG/DAY)
     Route: 065
  7. CASPOFUNGIN [Suspect]
     Active Substance: CASPOFUNGIN
     Dosage: 120 MILLIGRAM, QD (70+50 MG/DAY)
     Route: 065
  8. CASPOFUNGIN [Suspect]
     Active Substance: CASPOFUNGIN
     Dosage: 120 MILLIGRAM, QD (70+50 MG/DAY)

REACTIONS (1)
  - Drug ineffective [Fatal]
